FAERS Safety Report 4363745-8 (Version None)
Quarter: 2004Q2

REPORT INFORMATION
  Report Type: 
  Country: None (occurrence: None)
  Receive Date: 20040524
  Receipt Date: 20040513
  Transmission Date: 20050107
  Serious: Yes (Hospitalization)
  Sender: FDA-Public Use
  Company Number: FR-BRISTOL-MYERS SQUIBB COMPANY-12587523

PATIENT
  Age: 65 Year
  Sex: Female

DRUGS (9)
  1. COUMADIN [Suspect]
     Dosage: 2MG TABLET
     Route: 048
     Dates: start: 20000101, end: 20040304
  2. VASTEN TABS 20 MG [Interacting]
     Dosage: 20MG TABLET/2 DAILY
     Route: 048
     Dates: start: 20020101
  3. CANDESARTAN CILEXETIL + HCTZ [Concomitant]
  4. LASIX [Concomitant]
  5. STILNOX [Concomitant]
  6. TEMESTA [Concomitant]
  7. EFFERALGAN VITAMINE C [Concomitant]
  8. FOSAMAX [Concomitant]
  9. DIGOXIN [Concomitant]

REACTIONS (4)
  - CEREBRAL HAEMORRHAGE [None]
  - DRUG INEFFECTIVE [None]
  - DRUG INTERACTION [None]
  - INTERNATIONAL NORMALISED RATIO INCREASED [None]
